FAERS Safety Report 8294911 (Version 3)
Quarter: 2012Q4

REPORT INFORMATION
  Report Type: 
  Country: NO (occurrence: NO)
  Receive Date: 20111216
  Receipt Date: 20120907
  Transmission Date: 20130627
  Serious: Yes (Death)
  Sender: FDA-Public Use
  Company Number: NO-ABBOTT-11P-122-0882935-00

PATIENT
  Age: 24 Year
  Sex: Female

DRUGS (2)
  1. VALPROATE SODIUM [Suspect]
     Indication: EPILEPSY
  2. OXCARBAZEPINE [Suspect]
     Indication: EPILEPSY

REACTIONS (1)
  - Sudden unexplained death in epilepsy [Fatal]
